FAERS Safety Report 10349352 (Version 2)
Quarter: 2014Q3

REPORT INFORMATION
  Report Type: Spontaneous
  Country: DE (occurrence: DE)
  Receive Date: 20140730
  Receipt Date: 20140730
  Transmission Date: 20150326
  Serious: Yes (Hospitalization, Other)
  Sender: FDA-Public Use
  Company Number: DE-ROCHE-1408602

PATIENT
  Age: 54 Year
  Sex: Female
  Weight: 55.8 kg

DRUGS (3)
  1. XELODA [Suspect]
     Active Substance: CAPECITABINE
     Indication: BREAST CANCER METASTATIC
     Dosage: FIRST CYCLE
     Route: 048
     Dates: start: 20140414, end: 20140427
  2. AVASTIN [Suspect]
     Active Substance: BEVACIZUMAB
     Indication: PRODUCT USED FOR UNKNOWN INDICATION
     Route: 065
  3. XELODA [Suspect]
     Active Substance: CAPECITABINE
     Dosage: SECOND CYCLE
     Route: 048
     Dates: start: 20140505, end: 20140518

REACTIONS (25)
  - Cough [Unknown]
  - Heart rate irregular [Unknown]
  - Lacrimation increased [Unknown]
  - Vision blurred [Unknown]
  - Ocular hyperaemia [Unknown]
  - Photosensitivity reaction [Unknown]
  - Angiopathy [Unknown]
  - Dyspnoea [Unknown]
  - Eye irritation [Unknown]
  - Hypertension [Not Recovered/Not Resolved]
  - Hypoacusis [Unknown]
  - Headache [Not Recovered/Not Resolved]
  - Neuralgia [Unknown]
  - Dry eye [Unknown]
  - Chest pain [Unknown]
  - Weight decreased [Unknown]
  - Asthenia [Unknown]
  - Impaired healing [Not Recovered/Not Resolved]
  - Decreased appetite [Unknown]
  - Dizziness [Not Recovered/Not Resolved]
  - Palmar-plantar erythrodysaesthesia syndrome [Not Recovered/Not Resolved]
  - Visual impairment [Unknown]
  - Flatulence [Unknown]
  - Dysphonia [Unknown]
  - Tinnitus [Unknown]

NARRATIVE: CASE EVENT DATE: 20140521
